FAERS Safety Report 7606151-2 (Version None)
Quarter: 2011Q3

REPORT INFORMATION
  Report Type: 
  Country: None (occurrence: None)
  Receive Date: 20110705
  Receipt Date: 20110617
  Transmission Date: 20111222
  Serious: Yes (Other)
  Sender: FDA-Public Use
  Company Number: AUR-APL-2011-03572

PATIENT
  Age: 42 Year
  Sex: Female
  Weight: 99 kg

DRUGS (3)
  1. METFORMIN HCL [Suspect]
     Indication: DIABETES MELLITUS
     Dosage: 1000 MG
  2. LANTUS [Suspect]
     Indication: DIABETES MELLITUS
     Dosage: 70 IU
  3. GLYBURIDE [Suspect]
     Indication: DIABETES MELLITUS
     Dosage: 10 MG

REACTIONS (1)
  - BLOOD GLUCOSE INCREASED [None]
